FAERS Safety Report 5982353-6 (Version None)
Quarter: 2008Q4

REPORT INFORMATION
  Report Type: 
  Country: None (occurrence: None)
  Receive Date: 20081208
  Receipt Date: 20081201
  Transmission Date: 20090506
  Serious: Yes (Other)
  Sender: FDA-Public Use
  Company Number: US-BIOGENIDEC-2008BI021183

PATIENT
  Age: 29 Year
  Sex: Female
  Weight: 86 kg

DRUGS (1)
  1. TYSABRI [Suspect]
     Indication: MULTIPLE SCLEROSIS
     Route: 042
     Dates: start: 20080522

REACTIONS (7)
  - CEREBRAL HAEMORRHAGE [None]
  - HEADACHE [None]
  - LARYNGITIS [None]
  - LOCAL SWELLING [None]
  - SUBDURAL HAEMATOMA [None]
  - SWELLING FACE [None]
  - VISION BLURRED [None]
